FAERS Safety Report 5486442-4 (Version None)
Quarter: 2007Q4

REPORT INFORMATION
  Report Type: 
  Country: None (occurrence: None)
  Receive Date: 20071016
  Receipt Date: 20071011
  Transmission Date: 20080405
  Serious: Yes (Other)
  Sender: FDA-Public Use
  Company Number: A0680262A

PATIENT
  Age: 30 Year
  Sex: Male
  Weight: 70 kg

DRUGS (2)
  1. COMBIVIR [Suspect]
     Dosage: 2TAB PER DAY
     Route: 048
     Dates: start: 20060920, end: 20070628
  2. BLINDED TRIAL MEDICATION [Suspect]
     Dosage: 2U PER DAY
     Route: 048
     Dates: start: 20060920, end: 20070628

REACTIONS (4)
  - ALANINE AMINOTRANSFERASE INCREASED [None]
  - ASPARTATE AMINOTRANSFERASE INCREASED [None]
  - BLOOD CREATINE PHOSPHOKINASE INCREASED [None]
  - BLOOD LACTATE DEHYDROGENASE INCREASED [None]
